FAERS Safety Report 10385975 (Version 1)
Quarter: 2014Q1

REPORT INFORMATION
  Report Type: Spontaneous
  Country: US (occurrence: None)
  Receive Date: 20140306
  Receipt Date: 20140306
  Transmission Date: 20141002
  Serious: Yes (Hospitalization)
  Sender: FDA-Public Use
  Company Number: 163-21880-13054820

PATIENT
  Age: 68 Year
  Sex: Female
  Weight: 61.24 kg

DRUGS (10)
  1. REVLIMID [Suspect]
     Indication: PLASMA CELL MYELOMA
     Route: 048
     Dates: start: 20111213
  2. DEXAMETHASONE (DEXAMETHASONE) [Concomitant]
  3. CLONAZEPAM (CLONAZEPAM) [Concomitant]
  4. GABAPENTIN (GABAPENTIN) [Concomitant]
  5. LORAZEPAM (LORAZEPAM) (TABLETS) [Concomitant]
  6. ACYCLOVIR (ACICLOVIR) [Concomitant]
  7. PROCHLORPERAZINE (PROCHLORPERAZINE) [Concomitant]
  8. BACTRIM DS (BACTRIM) [Concomitant]
  9. WARFARIN SODIUM (WARFARIN SODIUM) [Concomitant]
  10. MULTIVITAMINS (MULTIVITAMINS) [Concomitant]

REACTIONS (5)
  - Infection [None]
  - Abdominal pain upper [None]
  - Diarrhoea [None]
  - Weight decreased [None]
  - Decreased appetite [None]
